FAERS Safety Report 12759916 (Version 2)
Quarter: 2016Q4

REPORT INFORMATION
  Report Type: Spontaneous
  Country: DE (occurrence: DE)
  Receive Date: 20160919
  Receipt Date: 20161114
  Transmission Date: 20170207
  Serious: No
  Sender: FDA-Public Use
  Company Number: ALCN2016DE006340

PATIENT
  Sex: Male

DRUGS (1)
  1. CIPROFLOXACIN HCL/DEXAMETHASONE [Suspect]
     Active Substance: CIPROFLOXACIN HYDROCHLORIDE\DEXAMETHASONE
     Indication: PRODUCT USED FOR UNKNOWN INDICATION
     Dosage: UNK
     Route: 001

REACTIONS (1)
  - Ear discomfort [Recovered/Resolved]

NARRATIVE: CASE EVENT DATE: 20160909
